FAERS Safety Report 13563366 (Version 2)
Quarter: 2017Q2

REPORT INFORMATION
  Report Type: Spontaneous
  Country: IT (occurrence: IT)
  Receive Date: 20170519
  Receipt Date: 20170531
  Transmission Date: 20170830
  Serious: Yes (Other)
  Sender: FDA-Public Use
  Company Number: IT-AMGEN-ITASP2017074031

PATIENT
  Age: 48 Year
  Sex: Female

DRUGS (6)
  1. CALCIUM [Suspect]
     Active Substance: CALCIUM
     Indication: VITAMIN D DEFICIENCY
     Dosage: 500 MG, QD
     Route: 048
     Dates: start: 20170428, end: 20170511
  2. PROLIA [Suspect]
     Active Substance: DENOSUMAB
     Indication: OSTEOPOROSIS PROPHYLAXIS
     Dosage: 60 MG, UNK
     Route: 058
     Dates: start: 20170428, end: 20170511
  3. FEMARA [Concomitant]
     Active Substance: LETROZOLE
     Indication: BREAST CANCER
     Dosage: UNK
     Dates: start: 20160801
  4. DIBASE [Concomitant]
     Active Substance: CHOLECALCIFEROL
     Indication: VITAMIN D DEFICIENCY
     Dosage: 25000 IU/ML, UNK
     Route: 048
  5. VITAMIN D3 [Suspect]
     Active Substance: CHOLECALCIFEROL
     Indication: VITAMIN D DEFICIENCY
     Dosage: 8000 IU, QD
     Route: 048
     Dates: start: 20170428, end: 20170511
  6. VITAMIN K2 [Suspect]
     Active Substance: MENAQUINONE 6
     Indication: VITAMIN D DEFICIENCY
     Dosage: 45 MUG, QD
     Route: 048
     Dates: start: 20170428, end: 20170511

REACTIONS (5)
  - Arthralgia [Unknown]
  - Bone pain [Recovering/Resolving]
  - Blood parathyroid hormone increased [Recovering/Resolving]
  - Dizziness [Recovering/Resolving]
  - Vertigo [Unknown]

NARRATIVE: CASE EVENT DATE: 20170429
